FAERS Safety Report 9145280 (Version 1)
Quarter: 2013Q1

REPORT INFORMATION
  Report Type: Spontaneous
  Country: US (occurrence: None)
  Receive Date: 20130226
  Receipt Date: 20130226
  Transmission Date: 20140127
  Serious: No
  Sender: FDA-Public Use
  Company Number: None

PATIENT
  Age: 61 Year
  Sex: Male

DRUGS (1)
  1. SUTENT [Suspect]
     Dosage: 50MG  DAILY  PO
     Route: 048
     Dates: start: 20121210, end: 20130221

REACTIONS (2)
  - Rash [None]
  - Drug ineffective [None]
